FAERS Safety Report 24777690 (Version 1)
Quarter: 2024Q4

REPORT INFORMATION
  Report Type: Report from Study
  Country: JP (occurrence: JP)
  Receive Date: 20241226
  Receipt Date: 20241226
  Transmission Date: 20250115
  Serious: Yes (Hospitalization)
  Sender: EMD SERONO INC
  Company Number: JP-Merck Healthcare KGaA-9398859

PATIENT
  Age: 68 Year
  Sex: Female

DRUGS (2)
  1. BAVENCIO [Suspect]
     Active Substance: AVELUMAB
     Indication: Transitional cell carcinoma
  2. BAVENCIO [Suspect]
     Active Substance: AVELUMAB
     Dates: start: 20220118, end: 20220118

REACTIONS (4)
  - Interstitial lung disease [Recovered/Resolved]
  - Erythema multiforme [Recovered/Resolved]
  - Rash [Recovered/Resolved]
  - Pyrexia [Recovered/Resolved]

NARRATIVE: CASE EVENT DATE: 20220121
